FAERS Safety Report 4435823-6 (Version None)
Quarter: 2004Q3

REPORT INFORMATION
  Report Type: 
  Country: None (occurrence: None)
  Receive Date: 20040726
  Receipt Date: 20040430
  Transmission Date: 20050211
  Serious: Yes (Other)
  Sender: FDA-Public Use
  Company Number: USA031051110

PATIENT
  Sex: Female

DRUGS (5)
  1. FORTEO [Suspect]
     Indication: OSTEOPOROSIS
     Dosage: 20 UG DAY
     Dates: start: 20031015
  2. MULTIVITAMIN [Concomitant]
  3. FEMHRT [Concomitant]
  4. MELATONIN [Concomitant]
  5. ASPIRIN [Concomitant]

REACTIONS (9)
  - ARTHRALGIA [None]
  - DIZZINESS [None]
  - FALL [None]
  - FATIGUE [None]
  - HEART RATE INCREASED [None]
  - MUSCLE CRAMP [None]
  - PAIN IN EXTREMITY [None]
  - SYNCOPE [None]
  - VERTIGO [None]
